FAERS Safety Report 26022228 (Version 1)
Quarter: 2025Q4

REPORT INFORMATION
  Report Type: Spontaneous
  Country: EU (occurrence: EU)
  Receive Date: 20251110
  Receipt Date: 20251110
  Transmission Date: 20260117
  Serious: Yes (Other)
  Sender: FRESENIUS KABI
  Company Number: None

PATIENT
  Age: 65 Year
  Sex: Male

DRUGS (11)
  1. OXALIPLATIN [Suspect]
     Active Substance: OXALIPLATIN
     Indication: Oesophageal squamous cell carcinoma
     Dosage: FOA: SOLUTION FOR INJECTION
     Route: 042
     Dates: start: 20250430, end: 20250930
  2. OXALIPLATIN [Suspect]
     Active Substance: OXALIPLATIN
     Dosage: OXALIPLATIN 119 MG (59.5 MG/M2)+GLUCOSE 5% 250 ML EVERY 14 DAYS (12TH CYCLE)?FOA: SOLUTION FOR INJEC
     Route: 042
     Dates: start: 20251014, end: 20251014
  3. MAGNESIUM SULFATE [Concomitant]
     Active Substance: MAGNESIUM SULFATE
     Indication: Product used for unknown indication
  4. ONDANSETRON [Concomitant]
     Active Substance: ONDANSETRON
     Indication: Product used for unknown indication
  5. DEXAMETHASONE [Concomitant]
     Active Substance: DEXAMETHASONE
     Indication: Product used for unknown indication
  6. LEVOLEUCOVORIN CALCIUM [Concomitant]
     Active Substance: LEVOLEUCOVORIN CALCIUM
     Indication: Product used for unknown indication
  7. FLUOROURACIL [Concomitant]
     Active Substance: FLUOROURACIL
     Indication: Product used for unknown indication
  8. PEMBROLIZUMAB [Concomitant]
     Active Substance: PEMBROLIZUMAB
     Indication: Product used for unknown indication
  9. DOMPERIDONE [Concomitant]
     Active Substance: DOMPERIDONE
     Indication: Product used for unknown indication
  10. Dormicum [Concomitant]
     Indication: Product used for unknown indication
     Dosage: FOA: FILM-COATED TABLET
  11. Blatan [Concomitant]
     Indication: Product used for unknown indication
     Dosage: FOA: MODIFIED-RELEASE TABLET

REACTIONS (2)
  - Poor peripheral circulation [Recovered/Resolved]
  - Respiratory distress [Recovered/Resolved]

NARRATIVE: CASE EVENT DATE: 20251014
